FAERS Safety Report 10936859 (Version 2)
Quarter: 2015Q2

REPORT INFORMATION
  Report Type: Spontaneous
  Country: US (occurrence: US)
  Receive Date: 20150321
  Receipt Date: 20150525
  Transmission Date: 20150821
  Serious: No
  Sender: FDA-Public Use
  Company Number: US-JNJFOC-20140605170

PATIENT
  Sex: Female
  Weight: 71.67 kg

DRUGS (2)
  1. TOPAMAX [Suspect]
     Active Substance: TOPIRAMATE
     Indication: TREMOR
     Route: 048
     Dates: start: 2014, end: 2014
  2. TOPAMAX [Suspect]
     Active Substance: TOPIRAMATE
     Indication: TREMOR
     Route: 048
     Dates: start: 2014, end: 2014

REACTIONS (1)
  - Drug ineffective for unapproved indication [Unknown]

NARRATIVE: CASE EVENT DATE: 2014
